FAERS Safety Report 17818201 (Version 1)
Quarter: 2020Q2

REPORT INFORMATION
  Report Type: Spontaneous
  Country: GB (occurrence: GB)
  Receive Date: 20200522
  Receipt Date: 20200522
  Transmission Date: 20200714
  Serious: Yes (Death, Other)
  Sender: FDA-Public Use
  Company Number: GB-MYLANLABS-2020M1050830

PATIENT
  Age: 59 Year
  Sex: Male

DRUGS (5)
  1. WARFARIN [Suspect]
     Active Substance: WARFARIN
     Indication: AORTIC VALVE REPLACEMENT
     Dosage: 8MG ON SATURDAY, SUNDAY, TUESDAY AND THURSDAY, 7MG ON MONDAY, WEDNESDAY AND FRIDAY
     Route: 048
     Dates: start: 20180101, end: 20200430
  2. ATORVASTATIN [Concomitant]
     Active Substance: ATORVASTATIN
     Indication: AORTIC VALVE REPLACEMENT
  3. BISOPROLOL [Concomitant]
     Active Substance: BISOPROLOL
  4. CANDESARTAN. [Concomitant]
     Active Substance: CANDESARTAN
  5. ACETYLSALICYLIC ACID [Suspect]
     Active Substance: ASPIRIN
     Indication: CARDIOVASCULAR DISORDER
     Dosage: 75 MILLIGRAM, QD
     Route: 048
     Dates: end: 20200430

REACTIONS (3)
  - Intraventricular haemorrhage [Fatal]
  - Hydrocephalus [Not Recovered/Not Resolved]
  - Headache [Unknown]

NARRATIVE: CASE EVENT DATE: 20200430
